FAERS Safety Report 9617623 (Version 1)
Quarter: 2013Q4

REPORT INFORMATION
  Report Type: Spontaneous
  Country: DE (occurrence: ES)
  Receive Date: 20131011
  Receipt Date: 20131011
  Transmission Date: 20140711
  Serious: Yes (Other)
  Sender: FDA-Public Use
  Company Number: DE-TEVA-436857GER

PATIENT
  Sex: Male

DRUGS (1)
  1. CLINDAMYCIN-RATIOPHARM 600 MG FILMTABLETTEN [Suspect]
     Indication: PULPITIS DENTAL
     Dosage: 1800 MILLIGRAM DAILY;
     Route: 048
     Dates: start: 20130829, end: 20130907

REACTIONS (9)
  - Nephritis [Not Recovered/Not Resolved]
  - Renal pain [Unknown]
  - Blood urine present [Unknown]
  - General physical health deterioration [Unknown]
  - Pyrexia [Unknown]
  - Chills [Unknown]
  - Nausea [Unknown]
  - Urticaria [Unknown]
  - Diarrhoea [Not Recovered/Not Resolved]
